FAERS Safety Report 21756851 (Version 1)
Quarter: 2022Q4

REPORT INFORMATION
  Report Type: Spontaneous
  Country: US (occurrence: None)
  Receive Date: 20221220
  Receipt Date: 20221220
  Transmission Date: 20230112
  Serious: No
  Sender: FDA-Public Use
  Company Number: 2022A388151

PATIENT
  Sex: Male
  Weight: 88.5 kg

DRUGS (1)
  1. BYDUREON BCISE [Suspect]
     Active Substance: EXENATIDE
     Indication: Weight decreased
     Dosage: 2 MG SUBCUTANEOUS INJECTIONS, ONCE A WEEK
     Route: 058

REACTIONS (4)
  - Injection site vesicles [Unknown]
  - Hypertension [Unknown]
  - Injection site rash [Unknown]
  - Off label use [Unknown]
